FAERS Safety Report 8131558-7 (Version None)
Quarter: 2012Q1

REPORT INFORMATION
  Report Type: 
  Country: None (occurrence: None)
  Receive Date: 20120213
  Receipt Date: 20120202
  Transmission Date: 20120608
  Serious: Yes (Hospitalization, Other)
  Sender: FDA-Public Use
  Company Number: JP-JNJFOC-20111204370

PATIENT
  Sex: Female

DRUGS (15)
  1. LANSOPRAZOLE [Concomitant]
     Indication: GASTROOESOPHAGEAL REFLUX DISEASE
     Route: 048
     Dates: start: 20110425, end: 20110607
  2. PANCREAZE [Concomitant]
     Indication: CHOLELITHIASIS
     Route: 048
     Dates: start: 20110425
  3. CAMOSTATE [Concomitant]
     Indication: PANCREATITIS CHRONIC
     Route: 048
     Dates: start: 20110425
  4. URSO 250 [Concomitant]
     Indication: PANCREATITIS CHRONIC
     Route: 048
     Dates: start: 20110425
  5. LEVOFLOXACIN [Suspect]
     Indication: CYSTITIS
     Route: 048
     Dates: start: 20110425, end: 20110503
  6. RABEPRAZOLE SODIUM [Concomitant]
     Indication: GASTROOESOPHAGEAL REFLUX DISEASE
     Route: 048
     Dates: start: 20110425
  7. LEVOFLOXACIN [Suspect]
     Route: 048
     Dates: start: 20110602, end: 20110608
  8. PANCREAZE [Concomitant]
     Indication: PANCREATITIS CHRONIC
     Route: 048
     Dates: start: 20110425
  9. ASPARA-CA [Concomitant]
     Indication: OSTEOPOROSIS
     Route: 048
     Dates: start: 20110425
  10. CAMOSTATE [Concomitant]
     Indication: CHOLELITHIASIS
     Route: 048
     Dates: start: 20110425
  11. ALEROFF [Concomitant]
     Indication: RHINITIS ALLERGIC
     Route: 048
     Dates: start: 20110425, end: 20111025
  12. ONEALFA [Concomitant]
     Indication: OSTEOPOROSIS
     Route: 048
     Dates: start: 20110425
  13. LEVOFLOXACIN [Suspect]
     Route: 048
     Dates: start: 20110509, end: 20110515
  14. URSO 250 [Concomitant]
     Indication: CHOLELITHIASIS
     Route: 048
     Dates: start: 20110425
  15. EVISTA [Concomitant]
     Indication: OSTEOPOROSIS
     Route: 048
     Dates: start: 20110425

REACTIONS (2)
  - TENDON DISORDER [None]
  - LIGAMENT RUPTURE [None]
